FAERS Safety Report 5161831-6 (Version None)
Quarter: 2006Q4

REPORT INFORMATION
  Report Type: 
  Country: None (occurrence: None)
  Receive Date: 20061130
  Receipt Date: 20060922
  Transmission Date: 20070319
  Serious: No
  Sender: FDA-Public Use
  Company Number: US-GLAXOSMITHKLINE-A0621575A

PATIENT
  Age: 70 Year
  Sex: Female

DRUGS (3)
  1. WELLBUTRIN XL [Suspect]
     Indication: ANXIETY
     Dosage: 300MG SEE DOSAGE TEXT
     Route: 048
     Dates: start: 20060804
  2. THYROID TAB [Concomitant]
  3. MINERAL TAB [Concomitant]

REACTIONS (5)
  - DIZZINESS [None]
  - HEADACHE [None]
  - INSOMNIA [None]
  - MUSCLE TIGHTNESS [None]
  - NAUSEA [None]
